FAERS Safety Report 6014726-X (Version None)
Quarter: 2008Q4

REPORT INFORMATION
  Report Type: 
  Country: None (occurrence: None)
  Receive Date: 20081126
  Receipt Date: 20080228
  Transmission Date: 20090506
  Serious: Yes (Other)
  Sender: FDA-Public Use
  Company Number: 168236USA

PATIENT
  Age: 4 Year
  Sex: Female
  Weight: 17 kg

DRUGS (6)
  1. CARBOPLATIN [Suspect]
     Indication: OPTIC TRACT GLIOMA
     Dosage: 4.2 MG (126 MG, 1 IN 1 M) , INTRAVENOUS DRIP
     Route: 041
     Dates: start: 20071115, end: 20071227
  2. VINCRISTINE [Concomitant]
  3. DIPHENHYDRAMINE HYDROCHLORIDE [Concomitant]
  4. HYDROCORTISONE [Concomitant]
  5. RANIDITINE [Concomitant]
  6. ACETAMINOPHEN [Concomitant]

REACTIONS (5)
  - ANXIETY [None]
  - NAUSEA [None]
  - RASH [None]
  - SKIN REACTION [None]
  - VOMITING [None]
